FAERS Safety Report 9224547 (Version 1)
Quarter: 2012Q4

REPORT INFORMATION
  Report Type: Spontaneous
  Country: US (occurrence: None)
  Receive Date: 20120917
  Receipt Date: 20120917
  Transmission Date: 20130627
  Serious: Yes (Other)
  Sender: FDA-Public Use
  Company Number: HRA-CDB20120160

PATIENT
  Age: 28 Year
  Sex: Female

DRUGS (1)
  1. ELLA [Suspect]
     Dates: start: 20120315, end: 20120315

REACTIONS (3)
  - Unintended pregnancy [None]
  - No therapeutic response [None]
  - Abortion induced [None]
